FAERS Safety Report 12632558 (Version 2)
Quarter: 2016Q3

REPORT INFORMATION
  Report Type: Spontaneous
  Country: US (occurrence: US)
  Receive Date: 20160808
  Receipt Date: 20160808
  Transmission Date: 20161109
  Serious: No
  Sender: FDA-Public Use
  Company Number: US-BEH-2015055996

PATIENT
  Sex: Female
  Weight: 49 kg

DRUGS (25)
  1. NAFTIN [Concomitant]
     Active Substance: NAFTIFINE HYDROCHLORIDE
  2. PREDNISONE. [Concomitant]
     Active Substance: PREDNISONE
  3. TRAZODONE [Concomitant]
     Active Substance: TRAZODONE HYDROCHLORIDE
  4. OMEGA - 3 [Concomitant]
  5. HIZENTRA [Suspect]
     Active Substance: HUMAN IMMUNOGLOBULIN G
     Indication: IMMUNODEFICIENCY COMMON VARIABLE
     Dosage: 10 GM 50 ML VIAL
     Route: 058
  6. VALTREX [Concomitant]
     Active Substance: VALACYCLOVIR HYDROCHLORIDE
  7. ITRACONAZOLE. [Concomitant]
     Active Substance: ITRACONAZOLE
  8. NEURONTIN [Concomitant]
     Active Substance: GABAPENTIN
  9. D5W [Concomitant]
  10. OXYCODONE [Concomitant]
     Active Substance: OXYCODONE
  11. DIPHENHYDRAMINE. [Concomitant]
     Active Substance: DIPHENHYDRAMINE
  12. HIZENTRA [Suspect]
     Active Substance: HUMAN IMMUNOGLOBULIN G
     Indication: HYPOGAMMAGLOBULINAEMIA
     Route: 058
     Dates: start: 20150723
  13. ACETAMINOPHEN. [Concomitant]
     Active Substance: ACETAMINOPHEN
  14. FOLIC ACID. [Concomitant]
     Active Substance: FOLIC ACID
  15. VITAMIN D3 [Concomitant]
     Active Substance: CHOLECALCIFEROL
  16. EPIPEN [Concomitant]
     Active Substance: EPINEPHRINE
  17. MINOCYCLINE [Concomitant]
     Active Substance: MINOCYCLINE\MINOCYCLINE HYDROCHLORIDE
  18. AMOXICILLIN. [Concomitant]
     Active Substance: AMOXICILLIN
  19. PROBIOTICS [Concomitant]
     Active Substance: PROBIOTICS NOS
  20. LMX [Concomitant]
     Active Substance: LIDOCAINE
  21. CLOTRIMAZOLE. [Concomitant]
     Active Substance: CLOTRIMAZOLE
  22. DIAZEPAM. [Concomitant]
     Active Substance: DIAZEPAM
  23. CELEXA [Concomitant]
     Active Substance: CITALOPRAM HYDROBROMIDE
  24. LUNESTA [Concomitant]
     Active Substance: ESZOPICLONE
  25. ALBUTEROL. [Concomitant]
     Active Substance: ALBUTEROL

REACTIONS (1)
  - Infusion site swelling [Unknown]
